FAERS Safety Report 9736606 (Version 1)
Quarter: 2013Q4

REPORT INFORMATION
  Report Type: Spontaneous
  Country: US (occurrence: US)
  Receive Date: 20131206
  Receipt Date: 20131206
  Transmission Date: 20140711
  Serious: Yes (Hospitalization)
  Sender: FDA-Public Use
  Company Number: US-BIOGENIDEC-2013BI098478

PATIENT
  Sex: Female

DRUGS (17)
  1. TECFIDERA [Suspect]
     Indication: MULTIPLE SCLEROSIS
     Route: 048
  2. AMPYRA [Concomitant]
  3. OXYBUTYNIN [Concomitant]
  4. FLUOXETINE [Concomitant]
  5. PREMARIN [Concomitant]
  6. TRIMETHOPRIM [Concomitant]
  7. PREVACID [Concomitant]
  8. BACLOFEN [Concomitant]
  9. ALEVE [Concomitant]
  10. ACETAMINOPHEN [Concomitant]
  11. FISH OIL [Concomitant]
  12. VITAMIN D [Concomitant]
  13. VITAMIN B12 [Concomitant]
  14. LOPERAMIDE [Concomitant]
  15. CALCIUM [Concomitant]
  16. ASPIRIN [Concomitant]
  17. IBUPROFEN [Concomitant]

REACTIONS (1)
  - Multiple sclerosis relapse [Unknown]
